FAERS Safety Report 10179856 (Version 1)
Quarter: 2014Q2

REPORT INFORMATION
  Report Type: Spontaneous
  Country: US (occurrence: US)
  Receive Date: 20140519
  Receipt Date: 20140519
  Transmission Date: 20141212
  Serious: No
  Sender: FDA-Public Use
  Company Number: US-AMGEN INC.-USASP2013069754

PATIENT
  Age: 60 Year
  Sex: Female

DRUGS (9)
  1. PROLIA [Suspect]
     Indication: OSTEOPOROSIS POSTMENOPAUSAL
     Dosage: UNK
     Route: 065
     Dates: start: 20120410
  2. PRAVASTATIN                        /00880402/ [Concomitant]
     Dosage: 20 MG, UNK
     Route: 065
  3. CALCIUM + VITAMIN D                /01483701/ [Concomitant]
     Dosage: UNK
     Route: 065
  4. MAXALT [Concomitant]
     Dosage: UNK
     Route: 065
  5. FISH OIL [Concomitant]
     Dosage: UNK
     Route: 065
  6. RESTASIS [Concomitant]
     Indication: DRY EYE
     Dosage: UNK
     Route: 065
  7. NAPROXEN [Concomitant]
     Indication: HEADACHE
     Dosage: UNK
     Route: 065
  8. IBUPROFEN [Concomitant]
     Indication: HEADACHE
     Dosage: UNK
     Route: 065
  9. ACETAMINOPHEN [Concomitant]
     Indication: HEADACHE
     Dosage: UNK
     Route: 065

REACTIONS (1)
  - Lymphoedema [Unknown]
